FAERS Safety Report 19950382 (Version 1)
Quarter: 2021Q4

REPORT INFORMATION
  Report Type: Report from Study
  Country: GE (occurrence: GE)
  Receive Date: 20211013
  Receipt Date: 20211013
  Transmission Date: 20220304
  Serious: Yes (Other)
  Sender: FDA-Public Use
  Company Number: GE-LUNDBECK-DKLU3039331

PATIENT
  Age: 39 Year
  Sex: Female
  Weight: 74 kg

DRUGS (3)
  1. EPTINEZUMAB [Suspect]
     Active Substance: EPTINEZUMAB
     Indication: Migraine
     Dosage: THE VOLUME OF SOLUTION LEFT OVER IN THE BAG (ML): 90
     Route: 041
     Dates: end: 20211004
  2. SUMATRIPTAN [Concomitant]
     Active Substance: SUMATRIPTAN
     Indication: Migraine
     Dosage: PRN
     Route: 048
     Dates: start: 2000
  3. Aethinyloestradiolum / Drospirenonum [Concomitant]
     Indication: Contraception
     Dosage: 0.03/3 MG DAILY
     Route: 048
     Dates: start: 2017

REACTIONS (1)
  - Bronchospasm [Recovered/Resolved]

NARRATIVE: CASE EVENT DATE: 20211004
